FAERS Safety Report 4906625-9 (Version None)
Quarter: 2006Q1

REPORT INFORMATION
  Report Type: 
  Country: None (occurrence: None)
  Receive Date: 20060209
  Receipt Date: 20060202
  Transmission Date: 20060701
  Serious: Yes (Hospitalization)
  Sender: FDA-Public Use
  Company Number: SI-GLAXOSMITHKLINE-B0408914A

PATIENT
  Age: 69 Year
  Sex: Female
  Weight: 66 kg

DRUGS (5)
  1. ROSIGLITAZONE [Suspect]
     Dosage: 4MG PER DAY
     Route: 048
     Dates: start: 20050323, end: 20051101
  2. GLURENORM [Concomitant]
     Dosage: 30MG THREE TIMES PER DAY
     Route: 048
     Dates: start: 19980105
  3. TENORMIN [Concomitant]
     Route: 048
  4. ENAP H [Concomitant]
     Route: 048
  5. RANITAL [Concomitant]
     Route: 048

REACTIONS (3)
  - HEPATIC CIRRHOSIS [None]
  - HEPATOSPLENOMEGALY [None]
  - OEDEMA [None]
